FAERS Safety Report 5067418-8 (Version None)
Quarter: 2006Q3

REPORT INFORMATION
  Report Type: 
  Country: None (occurrence: None)
  Receive Date: 20060802
  Receipt Date: 20060703
  Transmission Date: 20061208
  Serious: Yes (Other)
  Sender: FDA-Public Use
  Company Number: JP-RB-3520-2006

PATIENT
  Sex: Female

DRUGS (20)
  1. BUPRENORPHINE HCL [Suspect]
     Dosage: 0.6 - 0.8  MG DAILY
     Route: 030
  2. AMINOPHYLLINE [Concomitant]
     Dosage: DOSAGE UNKNOWN
     Route: 048
  3. CANDESARTAN CILEXETIL [Concomitant]
     Indication: DRUG USE FOR UNKNOWN INDICATION
     Route: 048
  4. CODEINE PHOSPHATE [Concomitant]
     Indication: DRUG USE FOR UNKNOWN INDICATION
     Route: 065
  5. LEVOFLOXACIN [Concomitant]
     Indication: DRUG USE FOR UNKNOWN INDICATION
     Dosage: DOSAGE UNKNOWN
     Route: 065
  6. FENOTEROL HYDROBROMIDE [Concomitant]
     Dosage: DOSAGE UNKNOWN
     Route: 055
  7. FLUTICASONE PROPIONATE [Concomitant]
     Dosage: DOSAGE UNKNOWN
     Route: 055
  8. BROMHEXINE HYDROCHLORIDE [Concomitant]
     Route: 048
  9. AMLODIPINE BESYLATE [Concomitant]
     Route: 048
  10. PREDNISOLONE [Concomitant]
     Route: 048
  11. RANITIDINE HYDROCHLORIDE [Concomitant]
     Route: 048
  12. METOCLOPRAMIDE [Concomitant]
     Route: 048
  13. CLENBUTEROL HYDROCHLORIDE [Concomitant]
     Route: 048
  14. ZALTOPROFEN [Concomitant]
     Route: 048
  15. PRANLUKAST [Concomitant]
     Route: 048
  16. ZOPICLONE [Concomitant]
     Route: 048
  17. DEXTROMETHORPHAN HYDROBROMIDE [Concomitant]
     Route: 048
  18. THEOPHYLLINE [Concomitant]
     Route: 048
  19. FLUFENAMIC ACID [Concomitant]
     Route: 048
  20. COLD RELIEF [Concomitant]
     Route: 048

REACTIONS (1)
  - DRUG DEPENDENCE [None]
